FAERS Safety Report 4425883-0 (Version None)
Quarter: 2004Q3

REPORT INFORMATION
  Report Type: 
  Country: None (occurrence: None)
  Receive Date: 20040719
  Receipt Date: 20040426
  Transmission Date: 20050211
  Serious: No
  Sender: FDA-Public Use
  Company Number: A03200401330

PATIENT
  Age: 88 Year
  Sex: Male

DRUGS (4)
  1. UROXATRAL [Suspect]
     Indication: PROSTATIC DISORDER
     Dosage: 10 MG OD - ORAL
     Route: 048
     Dates: start: 20040416, end: 20040423
  2. SIMVASTATIN [Concomitant]
  3. VALSARTAN [Concomitant]
  4. GLIBENCLAMIDE [Concomitant]

REACTIONS (1)
  - JOINT SWELLING [None]
